FAERS Safety Report 4538309-3 (Version None)
Quarter: 2004Q4

REPORT INFORMATION
  Report Type: 
  Country: None (occurrence: None)
  Receive Date: 20041221
  Receipt Date: 20041029
  Transmission Date: 20050328
  Serious: No
  Sender: FDA-Public Use
  Company Number: US-JNJFOC-20041100460

PATIENT
  Sex: Male

DRUGS (1)
  1. EXTRA STRENGTH TYLENOL [Suspect]

REACTIONS (1)
  - FOREIGN BODY TRAUMA [None]
